FAERS Safety Report 24210956 (Version 1)
Quarter: 2024Q3

REPORT INFORMATION
  Report Type: Spontaneous
  Country: FR (occurrence: FR)
  Receive Date: 20240814
  Receipt Date: 20240814
  Transmission Date: 20241016
  Serious: Yes (Other)
  Sender: JOHNSON AND JOHNSON
  Company Number: FR-JNJFOC-20240819664

PATIENT

DRUGS (1)
  1. ERDAFITINIB [Suspect]
     Active Substance: ERDAFITINIB
     Indication: Product used for unknown indication
     Dosage: TO DECREASE ERDAFITINIB DOSE TO 6MG DAILY
     Route: 065

REACTIONS (2)
  - Paronychia [Unknown]
  - Palmar-plantar erythrodysaesthesia syndrome [Unknown]
